FAERS Safety Report 11294287 (Version 1)
Quarter: 2015Q3

REPORT INFORMATION
  Report Type: Spontaneous
  Country: US (occurrence: US)
  Receive Date: 20150722
  Receipt Date: 20150722
  Transmission Date: 20151125
  Serious: No
  Sender: FDA-Public Use
  Company Number: US-ELI_LILLY_AND_COMPANY-US200804002110

PATIENT
  Sex: Female
  Weight: 42.63 kg

DRUGS (3)
  1. CALCIUM PLUS /00751501/ [Concomitant]
     Dosage: UNK, 2/D
  2. VITAMIN D [Concomitant]
     Active Substance: CHOLECALCIFEROL
     Dosage: 1000 IU, EACH MORNING
  3. EVISTA [Suspect]
     Active Substance: RALOXIFENE HYDROCHLORIDE
     Indication: OSTEOPENIA
     Dosage: 60 MG, EACH MORNING
     Dates: start: 200611

REACTIONS (2)
  - Constipation [Not Recovered/Not Resolved]
  - Breast disorder [Not Recovered/Not Resolved]
